FAERS Safety Report 6364093-7 (Version None)
Quarter: 2009Q3

REPORT INFORMATION
  Report Type: 
  Country: None (occurrence: None)
  Receive Date: 20090919
  Receipt Date: 20090729
  Transmission Date: 20100115
  Serious: No
  Sender: FDA-Public Use
  Company Number: US-ABBOTT-09P-163-0582390-00

PATIENT
  Sex: Female
  Weight: 126.21 kg

DRUGS (3)
  1. HUMIRA [Suspect]
     Indication: RHEUMATOID ARTHRITIS
     Route: 058
     Dates: start: 20090301
  2. HUMIRA [Suspect]
     Dates: start: 20090623
  3. LYRICA [Suspect]
     Indication: PAIN
     Route: 048
     Dates: start: 20090501

REACTIONS (2)
  - CYSTITIS [None]
  - INFLUENZA LIKE ILLNESS [None]
